FAERS Safety Report 15837894 (Version 1)
Quarter: 2019Q1

REPORT INFORMATION
  Report Type: Spontaneous
  Country: US (occurrence: US)
  Receive Date: 20190117
  Receipt Date: 20190117
  Transmission Date: 20190417
  Serious: No
  Sender: FDA-Public Use
  Company Number: US-BRISTOL-MYERS SQUIBB COMPANY-BMS-2019-003511

PATIENT
  Sex: Female

DRUGS (1)
  1. ELIQUIS [Suspect]
     Active Substance: APIXABAN
     Indication: PRODUCT USED FOR UNKNOWN INDICATION
     Dosage: UNK
     Route: 065
     Dates: start: 201806

REACTIONS (9)
  - Terminal insomnia [Unknown]
  - Tremor [Unknown]
  - Confusional state [Unknown]
  - Insomnia [Unknown]
  - Asthenia [Unknown]
  - Feeling hot [Unknown]
  - Muscle spasms [Unknown]
  - Feeling abnormal [Unknown]
  - Paraesthesia [Unknown]
